FAERS Safety Report 20226989 (Version 1)
Quarter: 2021Q4

REPORT INFORMATION
  Report Type: Spontaneous
  Country: US (occurrence: US)
  Receive Date: 20211224
  Receipt Date: 20211224
  Transmission Date: 20220303
  Serious: Yes (Hospitalization, Other)
  Sender: FDA-Public Use
  Company Number: None

PATIENT
  Age: 34 Year
  Sex: Female

DRUGS (3)
  1. CAPECITABINE [Suspect]
     Active Substance: CAPECITABINE
     Indication: Triple negative breast cancer
     Dosage: TWICE DAILY FOR 14 DAYS OF EVERY 21 DAYS CYCLE FOR SIX CYCLES
     Route: 048
  2. DOCETAXEL [Suspect]
     Active Substance: DOCETAXEL
     Indication: Triple negative breast cancer
     Dosage: ONCE EVERY 21 DAYS
     Route: 048
  3. TILARGININE [Suspect]
     Active Substance: TILARGININE
     Indication: Triple negative breast cancer
     Dosage: FROM DAYS 1 TO 5 EVERY 21 DAYS CYCLE REGIMEN FOR FOUR CYCLES
     Route: 065

REACTIONS (9)
  - Disease progression [Recovered/Resolved]
  - Cerebral palsy [Recovered/Resolved]
  - Neurotoxicity [Recovered/Resolved]
  - Leukoencephalopathy [Recovered/Resolved]
  - Nausea [Recovered/Resolved]
  - Vomiting [Recovered/Resolved]
  - Fatigue [Recovered/Resolved]
  - Dyspnoea [Recovered/Resolved]
  - Cough [Recovered/Resolved]
